FAERS Safety Report 15919724 (Version 1)
Quarter: 2019Q1

REPORT INFORMATION
  Report Type: Spontaneous
  Country: US (occurrence: US)
  Receive Date: 20190205
  Receipt Date: 20190205
  Transmission Date: 20190417
  Serious: No
  Sender: FDA-Public Use
  Company Number: US-ROCHE-2119677

PATIENT

DRUGS (1)
  1. XOLAIR [Suspect]
     Active Substance: OMALIZUMAB
     Indication: MAST CELL ACTIVATION SYNDROME
     Route: 065

REACTIONS (6)
  - Pharyngeal oedema [Unknown]
  - Injection site pain [Unknown]
  - Speech disorder [Unknown]
  - Intentional product use issue [Unknown]
  - Dyspnoea [Unknown]
  - Off label use [Unknown]
